FAERS Safety Report 6400482-X (Version None)
Quarter: 2009Q4

REPORT INFORMATION
  Report Type: 
  Country: None (occurrence: None)
  Receive Date: 20091007
  Receipt Date: 20091007
  Transmission Date: 20100525
  Serious: Yes (Hospitalization)
  Sender: FDA-Public Use
  Company Number: None

PATIENT
  Sex: Male
  Weight: 104.7809 kg

DRUGS (1)
  1. LEVOTHYROXINE SODIUM [Suspect]
     Indication: HYPOTHYROIDISM
     Dosage: 30 1 A DAY PO
     Route: 048
     Dates: start: 20080102, end: 20090823

REACTIONS (6)
  - ABDOMINAL PAIN [None]
  - BACK PAIN [None]
  - CHEST PAIN [None]
  - MOOD ALTERED [None]
  - MUSCLE SPASMS [None]
  - PRODUCT SUBSTITUTION ISSUE [None]
